FAERS Safety Report 13455428 (Version 1)
Quarter: 2017Q2

REPORT INFORMATION
  Report Type: Spontaneous
  Country: US (occurrence: US)
  Receive Date: 20170418
  Receipt Date: 20170418
  Transmission Date: 20170830
  Serious: Yes (Hospitalization, Other)
  Sender: FDA-Public Use
  Company Number: None

PATIENT
  Age: 29 Year
  Sex: Female
  Weight: 95.26 kg

DRUGS (4)
  1. METFORMIN HCL ER 500MG TB24 [Suspect]
     Active Substance: METFORMIN HYDROCHLORIDE
  2. CINNAMON. [Concomitant]
     Active Substance: CINNAMON
  3. DANDILION ROOT [Concomitant]
  4. ALPHA LIPIC ACIED [Concomitant]

REACTIONS (3)
  - Flank pain [None]
  - Abnormal behaviour [None]
  - Haematuria [None]

NARRATIVE: CASE EVENT DATE: 20170208
